FAERS Safety Report 7960941-5 (Version None)
Quarter: 2011Q4

REPORT INFORMATION
  Report Type: 
  Country: None (occurrence: None)
  Receive Date: 20111201
  Receipt Date: 20111201
  Transmission Date: 20120403
  Serious: Yes (Life-Threatening, Disabling)
  Sender: FDA-Public Use
  Company Number: None

PATIENT
  Sex: Female
  Weight: 45.3597 kg

DRUGS (1)
  1. CLONIDINE [Suspect]

REACTIONS (5)
  - ALOPECIA [None]
  - LIVER DISORDER [None]
  - GASTROINTESTINAL DISORDER [None]
  - CONSTIPATION [None]
  - WEIGHT DECREASED [None]
